FAERS Safety Report 18198057 (Version 1)
Quarter: 2020Q3

REPORT INFORMATION
  Report Type: Spontaneous
  Country: US (occurrence: US)
  Receive Date: 20200826
  Receipt Date: 20200826
  Transmission Date: 20201103
  Serious: Yes (Hospitalization)
  Sender: FDA-Public Use
  Company Number: None

PATIENT
  Age: 67 Year
  Sex: Female

DRUGS (1)
  1. SPRYCEL [Suspect]
     Active Substance: DASATINIB
     Indication: CHRONIC MYELOID LEUKAEMIA
     Route: 048
     Dates: start: 20200729, end: 20200815

REACTIONS (12)
  - Vomiting [None]
  - Diarrhoea [None]
  - Pain [None]
  - Gastrooesophageal reflux disease [None]
  - Therapy interrupted [None]
  - Body temperature increased [None]
  - Rebound effect [None]
  - Abdominal discomfort [None]
  - Asthenia [None]
  - Pyrexia [None]
  - Nausea [None]
  - Faeces discoloured [None]

NARRATIVE: CASE EVENT DATE: 20200819
